FAERS Safety Report 6417220-7 (Version None)
Quarter: 2009Q4

REPORT INFORMATION
  Report Type: 
  Country: None (occurrence: None)
  Receive Date: 20091028
  Receipt Date: 20081106
  Transmission Date: 20100525
  Serious: Yes (Hospitalization, Other)
  Sender: FDA-Public Use
  Company Number: ES-JNJFOC-20081101405

PATIENT
  Age: 71 Year
  Sex: Female

DRUGS (6)
  1. LEVOFLOXACIN [Suspect]
     Indication: RESPIRATORY TRACT INFECTION
     Route: 048
  2. ASPIRIN [Concomitant]
     Route: 065
  3. OMEPRAZOLE [Concomitant]
     Route: 065
  4. FUROSEMIDE [Concomitant]
     Route: 065
  5. INSULIN SUSPENSION ISOPHANE [Concomitant]
     Route: 065
  6. CALCIUM ACETATE [Concomitant]
     Route: 065

REACTIONS (10)
  - C-REACTIVE PROTEIN INCREASED [None]
  - DIARRHOEA [None]
  - ECCHYMOSIS [None]
  - GINGIVAL BLEEDING [None]
  - HAEMATOMA [None]
  - PETECHIAE [None]
  - PYREXIA [None]
  - RENAL IMPAIRMENT [None]
  - THROMBOCYTOPENIA [None]
  - VOMITING [None]
